FAERS Safety Report 24919486 (Version 1)
Quarter: 2025Q1

REPORT INFORMATION
  Report Type: Report from Study
  Country: US (occurrence: US)
  Receive Date: 20250204
  Receipt Date: 20250204
  Transmission Date: 20250409
  Serious: No
  Sender: EXELIXIS
  Company Number: US-EXELIXIS-CABO-23071263

PATIENT
  Sex: Male

DRUGS (1)
  1. CABOMETYX [Suspect]
     Active Substance: CABOZANTINIB S-MALATE
     Indication: Renal cancer
     Dosage: 60 MG, QD
     Route: 048

REACTIONS (11)
  - Rash pruritic [Unknown]
  - Blood pressure increased [Unknown]
  - Erythema [Unknown]
  - Blister [Unknown]
  - Rash macular [Unknown]
  - Fatigue [Unknown]
  - Pain in extremity [Unknown]
  - Dysphonia [Unknown]
  - Dyspepsia [Unknown]
  - Paraesthesia [Unknown]
  - Oral herpes [Recovered/Resolved]
